FAERS Safety Report 5407079-9 (Version None)
Quarter: 2007Q3

REPORT INFORMATION
  Report Type: 
  Country: None (occurrence: None)
  Receive Date: 20070807
  Receipt Date: 20070731
  Transmission Date: 20080115
  Serious: Yes (Life-Threatening, Hospitalization)
  Sender: FDA-Public Use
  Company Number: FR-JNJFOC-20070800467

PATIENT
  Sex: Female

DRUGS (5)
  1. RISPERDAL [Suspect]
     Indication: ABNORMAL BEHAVIOUR
     Route: 048
  2. SOLIAN [Suspect]
     Indication: ABNORMAL BEHAVIOUR
     Route: 048
  3. PROZAC [Suspect]
     Indication: DEPRESSION
     Route: 048
  4. VALIUM [Suspect]
     Indication: ANXIETY
     Route: 048
  5. HEPT-A-MYL [Suspect]
     Indication: HYPOTENSION
     Route: 048

REACTIONS (2)
  - ALTERED STATE OF CONSCIOUSNESS [None]
  - STATUS EPILEPTICUS [None]
